FAERS Safety Report 5768237-7 (Version None)
Quarter: 2008Q2

REPORT INFORMATION
  Report Type: 
  Country: None (occurrence: None)
  Receive Date: 20080612
  Receipt Date: 20080407
  Transmission Date: 20081010
  Serious: No
  Sender: FDA-Public Use
  Company Number: US-ABBOTT-07P-163-0374677-00

PATIENT
  Sex: Female
  Weight: 62.198 kg

DRUGS (4)
  1. HUMIRA [Suspect]
     Indication: PSORIATIC ARTHROPATHY
     Route: 058
     Dates: start: 20070501, end: 20070801
  2. HUMIRA [Suspect]
     Indication: PSORIASIS
  3. ETANERCEPT [Concomitant]
     Indication: ARTHRITIS
     Dates: start: 20080301
  4. DULOXETINE HYDROCHLORIDE [Concomitant]
     Indication: PAIN
     Route: 048
     Dates: start: 20070701

REACTIONS (2)
  - ALOPECIA [None]
  - WEIGHT DECREASED [None]
